FAERS Safety Report 4656246-0 (Version None)
Quarter: 2005Q2

REPORT INFORMATION
  Report Type: 
  Country: None (occurrence: None)
  Receive Date: 20050509
  Receipt Date: 20050311
  Transmission Date: 20051028
  Serious: No
  Sender: FDA-Public Use
  Company Number: US-GLAXOSMITHKLINE-A0549398A

PATIENT
  Sex: Male

DRUGS (13)
  1. AVANDAMET [Suspect]
     Dosage: 1TAB TWICE PER DAY
     Route: 048
     Dates: end: 20050310
  2. STARLIX [Concomitant]
  3. TRICOR [Concomitant]
  4. PRAVACHOL [Concomitant]
  5. ATENOLOL [Concomitant]
  6. PLETAL [Concomitant]
  7. PLAVIX [Concomitant]
  8. ASPIRIN [Concomitant]
  9. FLUTEX [Concomitant]
  10. FLOMAX [Concomitant]
  11. ALLOPURINOL [Concomitant]
  12. COLCHICINE [Concomitant]
  13. AVANDIA [Concomitant]

REACTIONS (1)
  - RENAL IMPAIRMENT [None]
